FAERS Safety Report 24856656 (Version 1)
Quarter: 2025Q1

REPORT INFORMATION
  Report Type: Spontaneous
  Country: US (occurrence: US)
  Receive Date: 20250117
  Receipt Date: 20250117
  Transmission Date: 20250409
  Serious: Yes (Hospitalization, Other)
  Sender: TEVA
  Company Number: US-TEVA-VS-3285295

PATIENT
  Age: 36 Year
  Sex: Female

DRUGS (1)
  1. METFORMIN [Suspect]
     Active Substance: METFORMIN HYDROCHLORIDE
     Indication: Diabetes mellitus
     Route: 065

REACTIONS (10)
  - Hypertriglyceridaemia [Not Recovered/Not Resolved]
  - Diabetic retinopathy [Unknown]
  - Vitreous haemorrhage [Unknown]
  - Insulin resistance [Unknown]
  - Osteomyelitis [Unknown]
  - Weight increased [Unknown]
  - Toe amputation [Unknown]
  - Diabetic nephropathy [Unknown]
  - Diabetic neuropathy [Unknown]
  - Diabetes mellitus inadequate control [Not Recovered/Not Resolved]
